FAERS Safety Report 17808587 (Version 2)
Quarter: 2020Q2

REPORT INFORMATION
  Report Type: Spontaneous
  Country: US (occurrence: US)
  Receive Date: 20200520
  Receipt Date: 20200520
  Transmission Date: 20200714
  Serious: No
  Sender: FDA-Public Use
  Company Number: US-JAZZ-2014-US-000220

PATIENT
  Age: 51 Year
  Sex: Female

DRUGS (8)
  1. XYREM [Suspect]
     Active Substance: SODIUM OXYBATE
     Dosage: 3.0 G, BID
     Route: 048
  2. METHIMAZOLE. [Concomitant]
     Active Substance: METHIMAZOLE
     Indication: HYPERTHYROIDISM
     Dosage: UNSPECIFIED DOSE
  3. XYREM [Suspect]
     Active Substance: SODIUM OXYBATE
     Indication: NARCOLEPSY
     Dosage: 2.25 G, BID
     Route: 048
     Dates: start: 201312
  4. XYREM [Suspect]
     Active Substance: SODIUM OXYBATE
     Dosage: 3.75 G, BID
     Route: 048
  5. PRILOSEC [Concomitant]
     Active Substance: OMEPRAZOLE MAGNESIUM
     Indication: GASTROOESOPHAGEAL REFLUX DISEASE
     Dosage: UNSPECIFIED DOSE
  6. XYREM [Suspect]
     Active Substance: SODIUM OXYBATE
     Dosage: 3.0 G, BID
     Route: 048
  7. NAPROXEN. [Suspect]
     Active Substance: NAPROXEN
     Indication: PLEURISY
     Dosage: UNKNOWN
     Route: 065
  8. NUVIGIL [Concomitant]
     Active Substance: ARMODAFINIL
     Indication: NARCOLEPSY
     Dosage: UNSPECIFIED DOSE

REACTIONS (6)
  - Dizziness [Recovering/Resolving]
  - Balance disorder [Not Recovered/Not Resolved]
  - Infection [Not Recovered/Not Resolved]
  - Pleurisy [Recovered/Resolved]
  - Nasal congestion [Not Recovered/Not Resolved]
  - Sensation of foreign body [Unknown]

NARRATIVE: CASE EVENT DATE: 201312
